FAERS Safety Report 10854644 (Version 1)
Quarter: 2015Q1

REPORT INFORMATION
  Report Type: Spontaneous
  Country: IT (occurrence: None)
  Receive Date: 20150218
  Receipt Date: 20150218
  Transmission Date: 20150721
  Serious: Yes (Hospitalization)
  Sender: FDA-Public Use
  Company Number: IT-2014VAL000469

PATIENT
  Age: 70 Year
  Sex: Female

DRUGS (13)
  1. ANTRA (OMEPRAZOLE) [Concomitant]
     Active Substance: OMEPRAZOLE
  2. MINITRAN (GLYCERYL TRINITRATE) [Concomitant]
  3. INEGY (EZETIMIBE, SIMVASTATIN) [Concomitant]
  4. CANDESARTAN CILEXETIL (CANDESARTAN CILEXETIL) [Concomitant]
     Active Substance: CANDESARTAN CILEXETIL
  5. SANDIMMUN NEORAL (CICLOSPORIN) [Concomitant]
  6. SEACOR (OMEGA-3 TRIGLYCERIDES) [Concomitant]
  7. ATENOLOL (ATENOLOL) [Concomitant]
     Active Substance: ATENOLOL
  8. ZYLORIC (ALLOPURINOL) [Concomitant]
     Active Substance: ALLOPURINOL
  9. HUMALOG [Concomitant]
     Active Substance: INSULIN LISPRO
  10. EUTIROX (LEVOTHYROXINE SODIUM) [Concomitant]
     Active Substance: LEVOTHYROXINE SODIUM
  11. CARDIOASPIRIN (ACETYLSALICYLIC ACID) [Concomitant]
     Active Substance: ASPIRIN
  12. ROCALTROL [Suspect]
     Active Substance: CALCITRIOL
     Indication: OSTEOPOROSIS
     Dosage: SOFT CAPSULES, 30 CAPSULES
     Route: 048
     Dates: start: 20140907, end: 20140909
  13. CALCIUM (CALCIUM) [Concomitant]
     Active Substance: CALCIUM

REACTIONS (3)
  - Osteoporosis [None]
  - Off label use [None]
  - Hypercalcaemia [None]

NARRATIVE: CASE EVENT DATE: 20140907
